FAERS Safety Report 19617835 (Version 4)
Quarter: 2021Q4

REPORT INFORMATION
  Report Type: Report from Study
  Country: US (occurrence: US)
  Receive Date: 20210727
  Receipt Date: 20211129
  Transmission Date: 20220303
  Serious: Yes (Hospitalization, Other)
  Sender: FDA-Public Use
  Company Number: US-UCBSA-2021034398

PATIENT
  Sex: Female

DRUGS (1)
  1. CERTOLIZUMAB PEGOL [Suspect]
     Active Substance: CERTOLIZUMAB PEGOL
     Indication: Rheumatoid arthritis
     Dosage: 200 MILLIGRAM, EV 2 WEEKS(QOW)
     Dates: end: 20210708

REACTIONS (5)
  - Spinal fracture [Recovering/Resolving]
  - Genital burning sensation [Not Recovered/Not Resolved]
  - Therapeutic product effect delayed [Unknown]
  - Rheumatoid arthritis [Not Recovered/Not Resolved]
  - Therapeutic nerve ablation [Not Recovered/Not Resolved]

NARRATIVE: CASE EVENT DATE: 20210101
